FAERS Safety Report 5967001-3 (Version None)
Quarter: 2008Q4

REPORT INFORMATION
  Report Type: 
  Country: None (occurrence: None)
  Receive Date: 20081125
  Receipt Date: 20081111
  Transmission Date: 20090506
  Serious: Yes (Hospitalization, Other)
  Sender: FDA-Public Use
  Company Number: US-ELI_LILLY_AND_COMPANY-US200811002684

PATIENT
  Sex: Female

DRUGS (12)
  1. FORTEO [Suspect]
     Indication: OSTEOPOROSIS
     Dosage: UNK, UNK
  2. FORTEO [Suspect]
     Dosage: 20 UG, DAILY (1/D)
  3. PRILOSEC [Concomitant]
  4. SPIRONOLACTONE [Concomitant]
  5. ENALAPRIL MALEATE [Concomitant]
  6. ZETIA [Concomitant]
  7. LASIX [Concomitant]
  8. LOPRESSOR [Concomitant]
  9. DARVOCET [Concomitant]
     Dosage: UNK, AS NEEDED
  10. Q10 [Concomitant]
  11. VITAMIN E /001105/ [Concomitant]
  12. FISH OIL [Concomitant]

REACTIONS (4)
  - ANAEMIA [None]
  - ASTHENIA [None]
  - CARDIAC FAILURE CONGESTIVE [None]
  - MEMORY IMPAIRMENT [None]
